FAERS Safety Report 8426072-5 (Version None)
Quarter: 2012Q2

REPORT INFORMATION
  Report Type: 
  Country: None (occurrence: None)
  Receive Date: 20120604
  Receipt Date: 20120525
  Transmission Date: 20120825
  Serious: Yes (Hospitalization)
  Sender: FDA-Public Use
  Company Number: 2012SP028539

PATIENT
  Age: 60 Year
  Sex: Female

DRUGS (9)
  1. COPEGUS [Suspect]
     Indication: HEPATITIS C
     Dates: start: 20110401, end: 20110701
  2. COPEGUS [Suspect]
     Indication: HEPATITIS C
     Dates: start: 20060101, end: 20080101
  3. CEFPODOXIME PROXETIL [Concomitant]
  4. VICTRELIS [Suspect]
     Indication: HEPATITIS C
     Dosage: 800 MG;TID;
     Dates: start: 20120209
  5. BRONCHOKOD [Concomitant]
  6. DETURGYLONE [Concomitant]
  7. PEGASYS [Suspect]
     Indication: HEPATITIS C
     Dates: start: 20060101, end: 20080101
  8. PEGASYS [Suspect]
     Indication: HEPATITIS C
     Dates: start: 20110401, end: 20110701
  9. PEGASYS [Suspect]
     Indication: HEPATITIS C
     Dates: start: 20120102

REACTIONS (8)
  - OEDEMA PERIPHERAL [None]
  - DYSPNOEA [None]
  - BRONCHITIS [None]
  - TACHYCARDIA [None]
  - BLOOD THYROID STIMULATING HORMONE INCREASED [None]
  - HEPATIC CIRRHOSIS [None]
  - WEIGHT INCREASED [None]
  - HAEMOGLOBIN DECREASED [None]
